FAERS Safety Report 13433910 (Version 3)
Quarter: 2017Q2

REPORT INFORMATION
  Report Type: Report from Study
  Country: US (occurrence: US)
  Receive Date: 20170413
  Receipt Date: 20170515
  Transmission Date: 20170830
  Serious: Yes (Death, Hospitalization, Other)
  Sender: FDA-Public Use
  Company Number: US-GILEAD-2017-0259644

PATIENT
  Age: 78 Year
  Sex: Female

DRUGS (6)
  1. AMBRISENTAN [Suspect]
     Active Substance: AMBRISENTAN
     Indication: PULMONARY EMBOLISM
  2. ADEMPAS [Concomitant]
     Active Substance: RIOCIGUAT
  3. AMBRISENTAN [Suspect]
     Active Substance: AMBRISENTAN
     Indication: PULMONARY HYPERTENSION
     Dosage: 10 MG, QD
     Route: 065
     Dates: start: 20150515
  4. ADCIRCA [Concomitant]
     Active Substance: TADALAFIL
  5. AMBRISENTAN [Suspect]
     Active Substance: AMBRISENTAN
     Indication: RHEUMATOID ARTHRITIS
  6. XARELTO [Concomitant]
     Active Substance: RIVAROXABAN

REACTIONS (5)
  - Death [Fatal]
  - General physical health deterioration [Unknown]
  - Thrombosis [Unknown]
  - Cardiac murmur [Unknown]
  - Renal failure [Unknown]
